FAERS Safety Report 4297854-9 (Version None)
Quarter: 2004Q1

REPORT INFORMATION
  Report Type: 
  Country: None (occurrence: None)
  Receive Date: 20040126
  Receipt Date: 20031030
  Transmission Date: 20041129
  Serious: No
  Sender: FDA-Public Use
  Company Number: USA031051216

PATIENT
  Age: 8 Year
  Sex: Male

DRUGS (2)
  1. STRATTERA [Suspect]
     Indication: ATTENTION DEFICIT/HYPERACTIVITY DISORDER
     Dates: start: 20031009
  2. ADDERALL 10 [Concomitant]

REACTIONS (4)
  - ANGER [None]
  - DRUG INEFFECTIVE [None]
  - IRRITABILITY [None]
  - NEGATIVISM [None]
